FAERS Safety Report 6734257-9 (Version None)
Quarter: 2010Q2

REPORT INFORMATION
  Report Type: 
  Country: None (occurrence: None)
  Receive Date: 20100520
  Receipt Date: 20100517
  Transmission Date: 20101027
  Serious: Yes (Death, Hospitalization)
  Sender: FDA-Public Use
  Company Number: PHHY2010US31982

PATIENT
  Sex: Female
  Weight: 90.1 kg

DRUGS (6)
  1. ZOMETA [Suspect]
     Dosage: UNK
     Dates: start: 20100302
  2. DECADRON [Concomitant]
     Dosage: 4 MG DAILY
     Route: 048
  3. PRINIVIL [Concomitant]
     Dosage: 20 MG DAILY
     Route: 048
  4. HYDROCHLOROTHIAZIDE [Concomitant]
     Dosage: 12.5 MG DAILY
     Route: 048
  5. DURAGESIC-100 [Concomitant]
     Dosage: PATCH
  6. REMERON [Concomitant]
     Dosage: 30 MG, UNK

REACTIONS (3)
  - DEATH [None]
  - MALIGNANT NEOPLASM PROGRESSION [None]
  - METASTASES TO BONE MARROW [None]
